FAERS Safety Report 22221399 (Version 1)
Quarter: 2023Q2

REPORT INFORMATION
  Report Type: Spontaneous
  Country: IN (occurrence: IN)
  Receive Date: 20230418
  Receipt Date: 20230418
  Transmission Date: 20230722
  Serious: Yes (Other)
  Sender: FDA-Public Use
  Company Number: ALC2023IN002001

PATIENT
  Age: 60 Year
  Sex: Female

DRUGS (4)
  1. NETARSUDIL [Suspect]
     Active Substance: NETARSUDIL
     Indication: Transplant rejection
     Dosage: UNK
     Route: 047
  2. NETARSUDIL [Suspect]
     Active Substance: NETARSUDIL
     Indication: Corneal oedema
  3. SODIUM CHLORIDE [Concomitant]
     Active Substance: SODIUM CHLORIDE
     Indication: Product used for unknown indication
     Dosage: 5 %, QID
  4. PREDNISOLONE ACETATE [Concomitant]
     Active Substance: PREDNISOLONE ACETATE
     Indication: Product used for unknown indication
     Dosage: 1 %, QID

REACTIONS (4)
  - Corneal oedema [Recovered/Resolved]
  - Off label use [Unknown]
  - Conjunctival hyperaemia [Recovered/Resolved]
  - Eye pain [Recovered/Resolved]
